FAERS Safety Report 6979294-4 (Version None)
Quarter: 2010Q3

REPORT INFORMATION
  Report Type: 
  Country: None (occurrence: None)
  Receive Date: 20100913
  Receipt Date: 20100831
  Transmission Date: 20110219
  Serious: Yes (Hospitalization, Other)
  Sender: FDA-Public Use
  Company Number: US-AMGEN-QUU432169

PATIENT
  Sex: Female

DRUGS (3)
  1. NPLATE [Suspect]
     Indication: PRODUCT USED FOR UNKNOWN INDICATION
     Dates: start: 20100802, end: 20100823
  2. ALEMTUZUMAB [Concomitant]
     Dates: start: 20100802
  3. CORTICOSTEROIDS [Concomitant]

REACTIONS (2)
  - HAEMORRHAGE INTRACRANIAL [None]
  - LARGE GRANULAR LYMPHOCYTOSIS [None]
